FAERS Safety Report 4737415-8 (Version None)
Quarter: 2005Q3

REPORT INFORMATION
  Report Type: 
  Country: None (occurrence: None)
  Receive Date: 20050805
  Receipt Date: 20050729
  Transmission Date: 20060218
  Serious: No
  Sender: FDA-Public Use
  Company Number: A001-002-006598

PATIENT
  Age: 82 Year
  Sex: Male
  Weight: 59 kg

DRUGS (10)
  1. ARICEPT [Suspect]
     Indication: DEMENTIA
     Dosage: 10 MG, 1 IN 1D, ORAL
     Route: 048
     Dates: start: 20040401
  2. SEROQUEL [Suspect]
     Indication: AGITATION
     Dosage: SEE IMAGE
     Route: 048
     Dates: start: 20050105, end: 20050629
  3. SEROQUEL [Suspect]
     Indication: AGITATION
     Dosage: SEE IMAGE
     Route: 048
     Dates: start: 20050630
  4. DIOVAN HCT (CO-DIOVAN) [Concomitant]
  5. LIPITOR [Concomitant]
  6. GINKGO BILOBA (GINKGO BILOBA) [Concomitant]
  7. OCCUVITE (VITAMINS) [Concomitant]
  8. VITAMINS E (TOCOPHEROL) [Concomitant]
  9. BACTRIM [Concomitant]
  10. LEVAGQUIN (LEVOFLOXACIN) [Concomitant]

REACTIONS (4)
  - AGITATION [None]
  - DYSKINESIA [None]
  - GAIT DISTURBANCE [None]
  - INFECTION [None]
